FAERS Safety Report 4843907-3 (Version None)
Quarter: 2005Q4

REPORT INFORMATION
  Report Type: 
  Country: None (occurrence: None)
  Receive Date: 20051202
  Receipt Date: 20050929
  Transmission Date: 20060501
  Serious: Yes (Hospitalization, Other)
  Sender: FDA-Public Use
  Company Number: US-MERCK-0510USA00565

PATIENT
  Age: 54 Year
  Sex: Female
  Weight: 75 kg

DRUGS (4)
  1. VIOXX [Suspect]
     Indication: ARTHRITIS
     Route: 048
     Dates: start: 19991201
  2. VIOXX [Suspect]
     Route: 048
     Dates: end: 20040901
  3. VIOXX [Suspect]
     Indication: MYALGIA
     Route: 048
     Dates: start: 19991201
  4. VIOXX [Suspect]
     Route: 048
     Dates: end: 20040901

REACTIONS (2)
  - ARTHROPATHY [None]
  - ISCHAEMIC STROKE [None]
